FAERS Safety Report 20840944 (Version 1)
Quarter: 2022Q2

REPORT INFORMATION
  Report Type: Spontaneous
  Country: US (occurrence: None)
  Receive Date: 20220517
  Receipt Date: 20220517
  Transmission Date: 20220720
  Serious: Yes (Death)
  Sender: FDA-Public Use
  Company Number: None

PATIENT
  Sex: Male
  Weight: 77.5 kg

DRUGS (1)
  1. TENECTEPLASE [Suspect]
     Active Substance: TENECTEPLASE
     Dosage: FREQUENCY : ONCE;?
     Route: 042
     Dates: start: 20220511, end: 20220511

REACTIONS (3)
  - Cerebral haemorrhage [None]
  - Intraventricular haemorrhage [None]
  - Hydrocephalus [None]

NARRATIVE: CASE EVENT DATE: 20220511
